FAERS Safety Report 8947109 (Version 2)
Quarter: 2013Q2

REPORT INFORMATION
  Report Type: Spontaneous
  Country: US (occurrence: US)
  Receive Date: 20121205
  Receipt Date: 20130625
  Transmission Date: 20140414
  Serious: Yes (Hospitalization, Disabling)
  Sender: FDA-Public Use
  Company Number: US-009507513-1212USA000425

PATIENT
  Sex: Female
  Weight: 104.31 kg

DRUGS (2)
  1. NUVARING [Suspect]
     Indication: CONTRACEPTION
     Dosage: UNK
     Route: 067
     Dates: start: 2004, end: 201012
  2. NUVARING [Suspect]
     Indication: MENORRHAGIA

REACTIONS (8)
  - Vascular injury [Unknown]
  - Deep vein thrombosis [Unknown]
  - Colitis ulcerative [Unknown]
  - Off label use [Unknown]
  - Foot fracture [Recovered/Resolved]
  - Leukocytosis [Unknown]
  - Vomiting [Unknown]
  - Nausea [Unknown]
